FAERS Safety Report 20681045 (Version 2)
Quarter: 2022Q3

REPORT INFORMATION
  Report Type: Spontaneous
  Country: US (occurrence: US)
  Receive Date: 20220406
  Receipt Date: 20220718
  Transmission Date: 20221026
  Serious: No
  Sender: FDA-Public Use
  Company Number: US-PFIZER INC-202100935361

PATIENT
  Age: 56 Year
  Sex: Female

DRUGS (4)
  1. IBRANCE [Suspect]
     Active Substance: PALBOCICLIB
     Dosage: 125 MG
     Dates: start: 20210716
  2. IBRANCE [Suspect]
     Active Substance: PALBOCICLIB
     Dosage: 125 MG
     Dates: start: 20210906
  3. IBRANCE [Suspect]
     Active Substance: PALBOCICLIB
     Dosage: 125 MG
     Dates: start: 20210907
  4. IBRANCE [Suspect]
     Active Substance: PALBOCICLIB
     Dosage: 125 MG
     Dates: start: 20210908

REACTIONS (10)
  - Product storage error [Unknown]
  - Diarrhoea [Unknown]
  - Muscle spasms [Unknown]
  - Sunburn [Not Recovered/Not Resolved]
  - Tenderness [Unknown]
  - Dizziness [Unknown]
  - Abdominal discomfort [Unknown]
  - Alopecia [Unknown]
  - Skin burning sensation [Unknown]
  - Hot flush [Unknown]
